FAERS Safety Report 5787861-9 (Version None)
Quarter: 2008Q2

REPORT INFORMATION
  Report Type: 
  Country: None (occurrence: None)
  Receive Date: 20080624
  Receipt Date: 20080624
  Transmission Date: 20081010
  Serious: Yes (Other)
  Sender: FDA-Public Use
  Company Number: None

PATIENT
  Age: 39 Year
  Sex: Female

DRUGS (1)
  1. ESTRADIOL PATCH [Suspect]
     Indication: HORMONE REPLACEMENT THERAPY
     Dosage: #1 WEEKLY
     Dates: start: 20080616

REACTIONS (1)
  - HEADACHE [None]
